FAERS Safety Report 7580913-2 (Version None)
Quarter: 2011Q2

REPORT INFORMATION
  Report Type: 
  Country: None (occurrence: None)
  Receive Date: 20110629
  Receipt Date: 20110622
  Transmission Date: 20111010
  Serious: Yes (Death, Hospitalization, Disabling, Other)
  Sender: FDA-Public Use
  Company Number: MX-MERCK-0705USA05587

PATIENT
  Age: 59 Year
  Sex: Female
  Weight: 121 kg

DRUGS (5)
  1. FOSAMAX [Suspect]
     Route: 048
     Dates: start: 19990505
  2. PREMARIN [Concomitant]
     Route: 065
     Dates: start: 19940101, end: 20040101
  3. [THERAPY UNSPECIFIED] [Concomitant]
     Indication: HYPERTENSION
     Route: 065
     Dates: start: 19940101
  4. MIACALCIN [Concomitant]
     Indication: OSTEOPOROSIS
     Route: 065
     Dates: start: 19970101
  5. FOSAMAX [Suspect]
     Indication: OSTEOPOROSIS
     Route: 048
     Dates: start: 19960101, end: 20050101

REACTIONS (76)
  - ESCHERICHIA URINARY TRACT INFECTION [None]
  - INAPPROPRIATE ANTIDIURETIC HORMONE SECRETION [None]
  - DIZZINESS [None]
  - TYPE 2 DIABETES MELLITUS [None]
  - TRANSIENT ISCHAEMIC ATTACK [None]
  - TENDON PAIN [None]
  - IRON DEFICIENCY ANAEMIA [None]
  - FIBULA FRACTURE [None]
  - DEPRESSION [None]
  - RADIUS FRACTURE [None]
  - INFECTION [None]
  - CATARACT [None]
  - DYSAESTHESIA [None]
  - INTERVERTEBRAL DISC DEGENERATION [None]
  - SKIN DISORDER [None]
  - LOWER LIMB FRACTURE [None]
  - HYPERLIPIDAEMIA [None]
  - ECCHYMOSIS [None]
  - PARAESTHESIA [None]
  - PEPTIC ULCER [None]
  - FOOT FRACTURE [None]
  - INTESTINAL FUNCTIONAL DISORDER [None]
  - IMPAIRED HEALING [None]
  - FRACTURE MALUNION [None]
  - RHINITIS [None]
  - BONE DISORDER [None]
  - INSOMNIA [None]
  - FALL [None]
  - PARONYCHIA [None]
  - HEAD INJURY [None]
  - TOOTH DISORDER [None]
  - GASTROOESOPHAGEAL REFLUX DISEASE [None]
  - FAMILY STRESS [None]
  - ASTHMA [None]
  - OSTEONECROSIS [None]
  - EPIGASTRIC DISCOMFORT [None]
  - DRUG HYPERSENSITIVITY [None]
  - ARTHRALGIA [None]
  - CARPAL TUNNEL SYNDROME [None]
  - PERIODONTAL DISEASE [None]
  - LARYNGITIS [None]
  - FRACTURE NONUNION [None]
  - LIMB DISCOMFORT [None]
  - ROTATOR CUFF SYNDROME [None]
  - ROSACEA [None]
  - CHEST PAIN [None]
  - EPISTAXIS [None]
  - PAPULE [None]
  - ORAL INFECTION [None]
  - BACK PAIN [None]
  - TENDON DISORDER [None]
  - HAEMATEMESIS [None]
  - GINGIVAL DISORDER [None]
  - CELLULITIS [None]
  - LOOSE TOOTH [None]
  - HYPONATRAEMIA [None]
  - MENTAL STATUS CHANGES [None]
  - BRONCHITIS [None]
  - NAIL DYSTROPHY [None]
  - VAGINAL INFECTION [None]
  - SWELLING [None]
  - BRONCHIAL HYPERREACTIVITY [None]
  - GLOSSITIS [None]
  - GINGIVAL PAIN [None]
  - FRACTURE [None]
  - EXOSTOSIS [None]
  - ANXIETY [None]
  - CEREBELLAR HAEMORRHAGE [None]
  - DELIRIUM [None]
  - DEATH [None]
  - MUSCLE STRAIN [None]
  - ADVERSE DRUG REACTION [None]
  - OSTEOARTHRITIS [None]
  - PAIN [None]
  - GOUTY ARTHRITIS [None]
  - UPPER LIMB FRACTURE [None]
